FAERS Safety Report 5441907-6 (Version None)
Quarter: 2007Q3

REPORT INFORMATION
  Report Type: 
  Country: None (occurrence: None)
  Receive Date: 20070830
  Receipt Date: 20070830
  Transmission Date: 20080115
  Serious: Yes (Hospitalization)
  Sender: FDA-Public Use
  Company Number: None

PATIENT
  Sex: Male
  Weight: 55 kg

DRUGS (4)
  1. BEVACIZUMAB (RHUMAB VEGF) [Suspect]
     Dosage: 1100 MG
     Dates: end: 20070813
  2. FLUOROURACIL [Suspect]
     Dosage: 18120 MG
     Dates: end: 20070813
  3. LEUCOVORIN CALCIUM [Suspect]
     Dosage: 2600 MG
     Dates: end: 20070813
  4. ELOXATIN [Suspect]
     Dosage: 560 MG
     Dates: end: 20070813

REACTIONS (2)
  - DEEP VEIN THROMBOSIS [None]
  - INTERNATIONAL NORMALISED RATIO ABNORMAL [None]
